FAERS Safety Report 9420946 (Version 1)
Quarter: 2013Q3

REPORT INFORMATION
  Report Type: Spontaneous
  Country: US (occurrence: US)
  Receive Date: 20130725
  Receipt Date: 20130725
  Transmission Date: 20140515
  Serious: No
  Sender: FDA-Public Use
  Company Number: US-ABBOTT-13P-163-1110970-00

PATIENT
  Age: 82 Year
  Sex: Male
  Weight: 74.91 kg

DRUGS (2)
  1. SYNTHROID [Suspect]
     Indication: HYPOTHYROIDISM
     Dates: start: 2010, end: 20130608
  2. SYNTHROID [Suspect]
     Indication: HYPOTHYROIDISM
     Dates: start: 20130609

REACTIONS (3)
  - Blood thyroid stimulating hormone increased [Unknown]
  - Nausea [Recovering/Resolving]
  - Dysphonia [Not Recovered/Not Resolved]
